FAERS Safety Report 24268045 (Version 2)
Quarter: 2024Q3

REPORT INFORMATION
  Report Type: Spontaneous
  Country: US (occurrence: US)
  Receive Date: 20240830
  Receipt Date: 20240904
  Transmission Date: 20241016
  Serious: Yes (Other)
  Sender: SANOFI AVENTIS
  Company Number: US-SANOFI-02194723

PATIENT
  Age: 85 Year
  Sex: Female

DRUGS (3)
  1. TOUJEO MAX [Suspect]
     Active Substance: INSULIN GLARGINE
     Indication: Type 2 diabetes mellitus
     Dosage: 50 IU, QD
     Route: 058
     Dates: start: 2004
  2. TOUJEO MAX [Suspect]
     Active Substance: INSULIN GLARGINE
     Dosage: 50 IU, QD
     Route: 058
  3. JANUMET XR [Concomitant]
     Active Substance: METFORMIN HYDROCHLORIDE\SITAGLIPTIN PHOSPHATE
     Dosage: UNK, QD

REACTIONS (6)
  - Blindness transient [Unknown]
  - Dry eye [Unknown]
  - Arthritis [Unknown]
  - Surgery [Unknown]
  - Blood glucose decreased [Unknown]
  - Product storage error [Unknown]
